FAERS Safety Report 16922081 (Version 1)
Quarter: 2019Q4

REPORT INFORMATION
  Report Type: Spontaneous
  Country: GB (occurrence: GB)
  Receive Date: 20191015
  Receipt Date: 20191015
  Transmission Date: 20200122
  Serious: Yes (Death, Life-Threatening, Other)
  Sender: FDA-Public Use
  Company Number: GB-AMGEN-GBRSP2019168907

PATIENT

DRUGS (5)
  1. FILGRASTIM [Suspect]
     Active Substance: FILGRASTIM
     Indication: PRODUCT USED FOR UNKNOWN INDICATION
     Dosage: 5 MICROGRAM/KILOGRAM, QD (ON DAYS 4 TO 13 OF EACH CYCLE)
     Route: 058
  2. POTASSIUM CHLORIDE. [Concomitant]
     Active Substance: POTASSIUM CHLORIDE
     Dosage: UNK UNK, CYCLICAL (ISOTONIC SALINE WITH ADDED POTASSIUM CHLORIDE)
  3. DOXORUBICIN [Concomitant]
     Active Substance: DOXORUBICIN
     Indication: OSTEOSARCOMA
     Dosage: 25 MILLIGRAM/SQ. METER, QD (4-HOUR INFUSION FOR 3 DAYS)
     Route: 042
  4. CISPLATIN. [Concomitant]
     Active Substance: CISPLATIN
     Indication: OSTEOSARCOMA
     Dosage: 100 MILLIGRAM/SQ. METER, CYCLICAL (24 HOUR INFUSION)
     Route: 042
  5. MANNITOL. [Concomitant]
     Active Substance: MANNITOL
     Indication: OSTEOSARCOMA
     Dosage: UNK UNK, CYCLICAL (FORCED MANNITOL DIURESIS)

REACTIONS (13)
  - Death [Fatal]
  - Neurotoxicity [Unknown]
  - Cardiotoxicity [Unknown]
  - Leukopenia [Unknown]
  - Ototoxicity [Unknown]
  - Haematotoxicity [Unknown]
  - Mucosal inflammation [Unknown]
  - Thrombocytopenia [Unknown]
  - Disease progression [Unknown]
  - Infection [Unknown]
  - Nausea [Unknown]
  - Neutropenia [Unknown]
  - Nephropathy toxic [Unknown]
